FAERS Safety Report 20161681 (Version 2)
Quarter: 2021Q4

REPORT INFORMATION
  Report Type: Spontaneous
  Country: DE (occurrence: DE)
  Receive Date: 20211208
  Receipt Date: 20211210
  Transmission Date: 20220303
  Serious: Yes (Death, Hospitalization)
  Sender: FDA-Public Use
  Company Number: DE-LESVI-2021000603

PATIENT
  Age: 25 Year
  Sex: Female
  Weight: 42 kg

DRUGS (2)
  1. FLUOXETINE HYDROCHLORIDE [Interacting]
     Active Substance: FLUOXETINE HYDROCHLORIDE
     Indication: Anorexia and bulimia syndrome
     Dosage: UNK UNK, UNKNOWN
     Route: 065
  2. TRIMIPRAMINE [Interacting]
     Active Substance: TRIMIPRAMINE
     Indication: Anorexia and bulimia syndrome
     Dosage: UNK, UNKNOWN
     Route: 065

REACTIONS (4)
  - Arrhythmia [Fatal]
  - Drug interaction [Fatal]
  - Toxicity to various agents [Fatal]
  - Cardiac disorder [Fatal]
